FAERS Safety Report 5320778-2 (Version None)
Quarter: 2007Q2

REPORT INFORMATION
  Report Type: 
  Country: None (occurrence: None)
  Receive Date: 20070507
  Receipt Date: 20070427
  Transmission Date: 20071010
  Serious: Yes (Other)
  Sender: FDA-Public Use
  Company Number: 2007-01218

PATIENT
  Age: 67 Year
  Sex: Male
  Weight: 120.3 kg

DRUGS (2)
  1. VELCADE [Suspect]
     Indication: LYMPHOMA
     Dosage: 1.30 MG/M2, IV BOLUS
     Route: 042
     Dates: start: 20070305, end: 20070405
  2. VORINOSTAT(SUBEROYLANILIDE HYDROXAMIC ACID) ORAL DRUG UNSPECIFIED FORM [Suspect]
     Indication: LYMPHOMA
     Dosage: 400.00 MG, ORAL
     Route: 048
     Dates: start: 20070305, end: 20070408

REACTIONS (2)
  - DIZZINESS [None]
  - MUSCULAR WEAKNESS [None]
